FAERS Safety Report 4544475-6 (Version None)
Quarter: 2004Q4

REPORT INFORMATION
  Report Type: 
  Country: None (occurrence: None)
  Receive Date: 20041230
  Receipt Date: 20041217
  Transmission Date: 20050328
  Serious: Yes (Hospitalization)
  Sender: FDA-Public Use
  Company Number: DSA_25516_2004

PATIENT
  Age: 81 Year
  Sex: Male
  Weight: 54.4316 kg

DRUGS (4)
  1. CARDIZEM CD [Suspect]
     Indication: ATRIAL FIBRILLATION
     Dosage: 120 MG Q DAY PO
     Route: 048
     Dates: start: 20010101
  2. CARDIZEM CD [Suspect]
     Indication: HYPERTENSION
     Dosage: 120 MG Q DAY PO
     Route: 048
     Dates: start: 20010101
  3. COUMADIN [Concomitant]
  4. M.V.I. [Concomitant]

REACTIONS (3)
  - ATRIAL FIBRILLATION [None]
  - CONDITION AGGRAVATED [None]
  - PNEUMONIA [None]
